FAERS Safety Report 4934784-0 (Version None)
Quarter: 2006Q1

REPORT INFORMATION
  Report Type: 
  Country: None (occurrence: None)
  Receive Date: 20060307
  Receipt Date: 20051019
  Transmission Date: 20060701
  Serious: Yes (Disabling)
  Sender: FDA-Public Use
  Company Number: US-MERCK-0510USA08016

PATIENT
  Age: 61 Year
  Sex: Female
  Weight: 91 kg

DRUGS (12)
  1. VIOXX [Suspect]
     Indication: ARTHRITIS
     Route: 048
     Dates: start: 20000801, end: 20040801
  2. AMPICILLIN [Concomitant]
     Route: 065
  3. LAC-HYDRIN [Concomitant]
     Route: 065
  4. NAPROXEN [Concomitant]
     Route: 065
  5. QUININE SULFATE [Concomitant]
     Route: 065
  6. MOBIC [Concomitant]
     Route: 065
  7. CRANTEX LA [Concomitant]
     Route: 065
  8. AMOXICILLIN [Concomitant]
     Route: 065
  9. ALTACE [Concomitant]
     Route: 065
  10. METFORMIN [Concomitant]
     Route: 065
  11. HYDRODIURIL [Concomitant]
     Route: 065
  12. CIPRO [Concomitant]
     Route: 065

REACTIONS (7)
  - CEREBROVASCULAR ACCIDENT [None]
  - DEAFNESS UNILATERAL [None]
  - DIABETES MELLITUS [None]
  - HYPERTENSION [None]
  - NEOPLASM [None]
  - PAIN [None]
  - THROMBOSIS [None]
